FAERS Safety Report 5018663-9 (Version None)
Quarter: 2006Q2

REPORT INFORMATION
  Report Type: 
  Country: None (occurrence: None)
  Receive Date: 20060602
  Receipt Date: 20060511
  Transmission Date: 20061013
  Serious: Yes (Other)
  Sender: FDA-Public Use
  Company Number: US200605002634

PATIENT
  Age: 26 Year
  Sex: Male

DRUGS (1)
  1. CYMBALTA [Suspect]
     Indication: DEPRESSION
     Dosage: SEE IMAGE
     Dates: start: 20060101

REACTIONS (4)
  - DYSURIA [None]
  - HEPATITIS B [None]
  - NAUSEA [None]
  - STRESS [None]
